FAERS Safety Report 4891390-4 (Version None)
Quarter: 2005Q4

REPORT INFORMATION
  Report Type: 
  Country: None (occurrence: None)
  Receive Date: 20051220
  Receipt Date: 20051024
  Transmission Date: 20060501
  Serious: Yes (Other)
  Sender: FDA-Public Use
  Company Number: 422468

PATIENT
  Age: 46 Year
  Sex: Female

DRUGS (7)
  1. BONIVA [Suspect]
     Indication: OSTEOPENIA
     Dosage: 150 MG 1 PER MONTH ORAL
     Route: 048
     Dates: start: 20051001, end: 20051001
  2. REBIF [Suspect]
     Indication: MULTIPLE SCLEROSIS
  3. ZANAFLEX [Concomitant]
  4. BACLOFEN [Concomitant]
  5. VALIUM [Concomitant]
  6. CELEXA [Concomitant]
  7. VITAMINS NOS (MULTIVITAMINS NOS) [Concomitant]

REACTIONS (2)
  - ANAEMIA [None]
  - WHITE BLOOD CELL COUNT DECREASED [None]
